FAERS Safety Report 14114485 (Version 2)
Quarter: 2017Q4

REPORT INFORMATION
  Report Type: Spontaneous
  Country: US (occurrence: US)
  Receive Date: 20171023
  Receipt Date: 20171031
  Transmission Date: 20180321
  Serious: No
  Sender: FDA-Public Use
  Company Number: US-PFIZER INC-2017453143

PATIENT
  Age: 48 Year
  Sex: Male
  Weight: 95.71 kg

DRUGS (7)
  1. COCAINE [Concomitant]
     Active Substance: COCAINE
     Dosage: UNK
  2. MARIJUANA [Concomitant]
     Active Substance: CANNABIS SATIVA SUBSP. INDICA TOP
     Dosage: UNK
  3. ENBREL [Concomitant]
     Active Substance: ETANERCEPT
     Indication: ARTHRITIS
     Dosage: 50MG/ML; 1ML INJECTION EVERY WEEK
     Route: 058
     Dates: start: 20170206
  4. LYRICA [Suspect]
     Active Substance: PREGABALIN
     Dosage: 300 MG, DAILY [TWO CAPSULES A DAY]
     Dates: start: 20160321
  5. LYRICA [Suspect]
     Active Substance: PREGABALIN
     Indication: OSTEOARTHRITIS
     Dosage: 75MG ONE A DAY
     Dates: start: 20150702
  6. ENBREL [Concomitant]
     Active Substance: ETANERCEPT
     Indication: OSTEOARTHRITIS
  7. KETOROLAC [Concomitant]
     Active Substance: KETOROLAC\KETOROLAC TROMETHAMINE
     Indication: ARTHRITIS
     Dosage: 60MG/2ML EVERY SIX HOURS
     Route: 030
     Dates: start: 20170206

REACTIONS (3)
  - Pain [Unknown]
  - Condition aggravated [Unknown]
  - Product use in unapproved indication [Unknown]

NARRATIVE: CASE EVENT DATE: 20150702
